FAERS Safety Report 8271914-X (Version None)
Quarter: 2012Q2

REPORT INFORMATION
  Report Type: 
  Country: None (occurrence: None)
  Receive Date: 20120410
  Receipt Date: 20120404
  Transmission Date: 20120825
  Serious: No
  Sender: FDA-Public Use
  Company Number: US-BAYER-2012-034106

PATIENT
  Age: 77 Year
  Sex: Male
  Weight: 73 kg

DRUGS (5)
  1. ALEVE (CAPLET) [Suspect]
     Indication: ANALGESIC THERAPY
     Dosage: 1 TABLET ONCE DAILY
     Route: 048
  2. TOPROL-XL [Concomitant]
  3. AVAPRO [Concomitant]
  4. ASPIRIN [Suspect]
     Indication: ISCHAEMIC HEART DISEASE PROPHYLAXIS
     Dosage: 325 MG, QD
     Route: 048
     Dates: start: 20070101
  5. LIPITOR [Concomitant]
     Dosage: UNIQUE IDENTIFIER 1050TAUU

REACTIONS (1)
  - NO ADVERSE EVENT [None]
